FAERS Safety Report 10217343 (Version 1)
Quarter: 2014Q2

REPORT INFORMATION
  Report Type: Spontaneous
  Country: FR (occurrence: FR)
  Receive Date: 20140604
  Receipt Date: 20140604
  Transmission Date: 20141212
  Serious: Yes (Life-Threatening, Hospitalization)
  Sender: FDA-Public Use
  Company Number: FR-LUNDBECK-DKLU1100581

PATIENT
  Age: 37 Year
  Sex: Female

DRUGS (6)
  1. CLOBAZAM [Suspect]
     Indication: PRODUCT USED FOR UNKNOWN INDICATION
     Route: 048
     Dates: start: 20140418, end: 20140421
  2. GARDENAL [Suspect]
     Indication: EPILEPSY
     Route: 048
     Dates: end: 20140421
  3. ZOLPIDEM TARTRATE [Suspect]
     Indication: PRODUCT USED FOR UNKNOWN INDICATION
     Route: 048
     Dates: end: 20140421
  4. LYSANXIA [Suspect]
     Indication: PRODUCT USED FOR UNKNOWN INDICATION
     Route: 048
     Dates: end: 20140421
  5. LAMALINE [Concomitant]
     Indication: PRODUCT USED FOR UNKNOWN INDICATION
  6. ACUPAN [Concomitant]
     Indication: PRODUCT USED FOR UNKNOWN INDICATION

REACTIONS (1)
  - Coma [Recovered/Resolved]
